FAERS Safety Report 5954527-1 (Version None)
Quarter: 2008Q4

REPORT INFORMATION
  Report Type: 
  Country: None (occurrence: None)
  Receive Date: 20081112
  Receipt Date: 20080220
  Transmission Date: 20090506
  Serious: Yes (Hospitalization)
  Sender: FDA-Public Use
  Company Number: 2008-00194FE

PATIENT
  Age: 40 Year
  Sex: Female

DRUGS (2)
  1. CHORIONIC GONADOTROPIN [Suspect]
     Indication: INFERTILITY
  2. LUTEINISING HORMONE () (LUTEINISING HORMONE (HUMAN)) [Suspect]
     Indication: INFERTILITY

REACTIONS (4)
  - ARTERIAL THROMBOSIS [None]
  - ASTHENIA [None]
  - CAESAREAN SECTION [None]
  - MYOCARDIAL INFARCTION [None]
